FAERS Safety Report 12580824 (Version 1)
Quarter: 2016Q3

REPORT INFORMATION
  Report Type: Spontaneous
  Country: GB (occurrence: GB)
  Receive Date: 20160721
  Receipt Date: 20160721
  Transmission Date: 20161109
  Serious: Yes (Disabling)
  Sender: FDA-Public Use
  Company Number: GB-MYLANLABS-2016M1029239

PATIENT

DRUGS (13)
  1. ADIZEM [Concomitant]
     Active Substance: DILTIAZEM HYDROCHLORIDE
     Dosage: 1 DF, BID
     Route: 048
     Dates: start: 20160401
  2. OMEPRAZOLE. [Concomitant]
     Active Substance: OMEPRAZOLE
     Dosage: UNK (TAKE ONE OR TWO CAPSULES DAILY AS DIRECTED FOR ...)
     Route: 048
     Dates: start: 20160401
  3. TERBUTALINE [Concomitant]
     Active Substance: TERBUTALINE
     Dosage: 1 DF, UNK
     Route: 055
     Dates: start: 20160401
  4. BUPRENORPHINE HYDROCHLORIDE. [Concomitant]
     Active Substance: BUPRENORPHINE HYDROCHLORIDE
     Indication: PAIN
     Dosage: UNK (TAKE 1 OR 2 DOSES 3 TIMES A DAY) (AS NECESSARY)
     Dates: start: 20160401
  5. GLYCERYL TRINITRATE [Concomitant]
     Active Substance: NITROGLYCERIN
     Dosage: UNK (SPRAY 1 OR 2 PUFFS UNDER THE TONGUE WHEN REQUIR...)(AS NECESSARY)
     Route: 060
     Dates: start: 20160401
  6. SIMVASTATIN. [Concomitant]
     Active Substance: SIMVASTATIN
     Dosage: 1 DF, QD (AT NIGHT)
     Route: 048
     Dates: start: 20160401
  7. ASPIRIN                            /00002701/ [Concomitant]
     Active Substance: ASPIRIN
     Dosage: 1 DF, QD
     Route: 048
     Dates: start: 20160401
  8. ATORVASTATIN [Suspect]
     Active Substance: ATORVASTATIN
     Dosage: UNK
     Route: 048
     Dates: start: 20160613
  9. BECLOMETASONE [Concomitant]
     Active Substance: BECLOMETHASONE DIPROPIONATE
     Dosage: 2 DF, UNK (TO BE USED IN BOTH NO...)
     Dates: start: 20160704
  10. SALMETEROL [Concomitant]
     Active Substance: SALMETEROL
     Dosage: 1 DF, BID
     Route: 055
     Dates: start: 20160401
  11. LIDOCAINE. [Concomitant]
     Active Substance: LIDOCAINE
     Dosage: 5 ML, UNK
     Dates: start: 20160419, end: 20160420
  12. RANOLAZINE [Concomitant]
     Active Substance: RANOLAZINE
     Dosage: 1 DF, BID
     Route: 048
     Dates: start: 20160401
  13. TIOTROPIUM [Concomitant]
     Active Substance: TIOTROPIUM
     Dosage: 1 DF, QD
     Route: 055
     Dates: start: 20160401

REACTIONS (2)
  - Erythema [Recovering/Resolving]
  - Peripheral swelling [Recovering/Resolving]

NARRATIVE: CASE EVENT DATE: 20160701
